FAERS Safety Report 4549600-9 (Version None)
Quarter: 2005Q1

REPORT INFORMATION
  Report Type: 
  Country: None (occurrence: None)
  Receive Date: 20050111
  Receipt Date: 20050106
  Transmission Date: 20050727
  Serious: Yes (Death)
  Sender: FDA-Public Use
  Company Number: US-JNJFOC-20050101579

PATIENT
  Age: 68 Year
  Sex: Male

DRUGS (12)
  1. DURAGESIC [Suspect]
     Indication: CANCER PAIN
     Route: 062
     Dates: start: 20030701, end: 20030815
  2. TRILISATE [Concomitant]
     Route: 049
     Dates: end: 20030815
  3. TRILISATE [Concomitant]
     Indication: BONE DISORDER
     Route: 049
     Dates: end: 20030815
  4. COMPAZINE [Concomitant]
     Indication: NAUSEA
     Route: 049
     Dates: end: 20030815
  5. COUMADIN [Concomitant]
     Indication: ANTICOAGULANT THERAPY
     Route: 049
     Dates: end: 20030815
  6. INDOCIN [Concomitant]
     Route: 049
     Dates: end: 20030815
  7. PHENOBARBITAL TAB [Concomitant]
     Indication: SLEEP DISORDER THERAPY
     Route: 049
     Dates: end: 20030815
  8. LASIX [Concomitant]
     Indication: DIURETIC THERAPY
     Route: 049
     Dates: end: 20030815
  9. LORAZEPAM [Concomitant]
     Indication: ANXIETY
     Route: 049
     Dates: end: 20030815
  10. LIQUID MORPHINE [Concomitant]
     Indication: PAIN
     Route: 049
     Dates: start: 20030801, end: 20030815
  11. PERCOCET [Concomitant]
     Route: 049
     Dates: end: 20030815
  12. PERCOCET [Concomitant]
     Indication: PAIN
     Dosage: 5 MG OXYCODONE PLUS 325 MG ACETAMINOPHEN AS NEEDED
     Route: 049
     Dates: end: 20030815

REACTIONS (2)
  - LUNG NEOPLASM MALIGNANT [None]
  - MALIGNANT NEOPLASM PROGRESSION [None]
